FAERS Safety Report 10068823 (Version 3)
Quarter: 2014Q2

REPORT INFORMATION
  Report Type: Spontaneous
  Country: JP (occurrence: JP)
  Receive Date: 20140409
  Receipt Date: 20140424
  Transmission Date: 20141212
  Serious: Yes (Life-Threatening, Other)
  Sender: FDA-Public Use
  Company Number: JP-PFIZER INC-2014097409

PATIENT
  Age: 80 Year
  Sex: 0

DRUGS (1)
  1. CORTRIL [Suspect]
     Indication: HYPOPITUITARISM
     Dosage: UNK
     Route: 048

REACTIONS (2)
  - Mesenteric artery thrombosis [Unknown]
  - Multi-organ failure [Unknown]
